FAERS Safety Report 10524167 (Version 1)
Quarter: 2014Q4

REPORT INFORMATION
  Report Type: Spontaneous
  Country: ES (occurrence: None)
  Receive Date: 20141010
  Receipt Date: 20141010
  Transmission Date: 20150528
  Serious: Yes (Other)
  Sender: FDA-Public Use
  Company Number: VAL_03467_2014

PATIENT
  Age: 62 Year
  Sex: Male

DRUGS (1)
  1. CARBAMAZEPINE (CARBAMAZEPINE) [Suspect]
     Active Substance: CARBAMAZEPINE
     Indication: TRIGEMINAL NEURALGIA
     Dosage: 1X/8 HOURS

REACTIONS (6)
  - Oedema peripheral [None]
  - Tubulointerstitial nephritis [None]
  - Deep vein thrombosis [None]
  - Ultrasound abdomen abnormal [None]
  - Haematuria [None]
  - Blood immunoglobulin A increased [None]
